FAERS Safety Report 10061693 (Version 1)
Quarter: 2014Q2

REPORT INFORMATION
  Report Type: Spontaneous
  Country: US (occurrence: US)
  Receive Date: 20140407
  Receipt Date: 20140407
  Transmission Date: 20141212
  Serious: No
  Sender: FDA-Public Use
  Company Number: US-TARO-2013P1020608

PATIENT
  Age: 67 Year
  Sex: Male

DRUGS (3)
  1. FLUOROURACIL TOPICAL CREAM USP 5% [Suspect]
     Dates: start: 20130413
  2. FLUOROURACIL TOPICAL CREAM USP 5% [Suspect]
     Route: 061
     Dates: start: 20131009, end: 20131014
  3. KETOCONAZOLE CREAM 2% [Suspect]
     Indication: FUNGAL INFECTION
     Dates: start: 2012

REACTIONS (4)
  - Application site exfoliation [Recovering/Resolving]
  - Pain [Recovering/Resolving]
  - Crying [Recovered/Resolved]
  - Wrong drug administered [Not Recovered/Not Resolved]
